FAERS Safety Report 17335778 (Version 4)
Quarter: 2020Q2

REPORT INFORMATION
  Report Type: Spontaneous
  Country: US (occurrence: US)
  Receive Date: 20200128
  Receipt Date: 20200616
  Transmission Date: 20200713
  Serious: No
  Sender: FDA-Public Use
  Company Number: US-ASTRAZENECA-2020SE00759

PATIENT
  Sex: Female
  Weight: 78 kg

DRUGS (1)
  1. PULMICORT FLEXHALER [Suspect]
     Active Substance: BUDESONIDE
     Indication: ASTHMA
     Dosage: 180 MCG,2 PUFFS,TWO TIMES A DAY
     Route: 055
     Dates: start: 201703

REACTIONS (4)
  - Retching [Unknown]
  - Drug delivery system issue [Unknown]
  - Exposure during pregnancy [Unknown]
  - Intentional product misuse [Unknown]
